FAERS Safety Report 9224280 (Version 1)
Quarter: 2013Q1

REPORT INFORMATION
  Report Type: Spontaneous
  Country: US (occurrence: None)
  Receive Date: 20120914
  Receipt Date: 20120914
  Transmission Date: 20140127
  Serious: Yes (Hospitalization, Other)
  Sender: FDA-Public Use
  Company Number: JPI-P-017718

PATIENT
  Age: 38 Year
  Sex: Male

DRUGS (2)
  1. XYREM [Suspect]
     Indication: CATAPLEXY
     Route: 048
     Dates: start: 20101118
  2. AMPHETAMINE, DEXTROAMPHETAMINE MIXED SALTS [Concomitant]

REACTIONS (10)
  - Psychotic disorder [None]
  - Abnormal behaviour [None]
  - Agitation [None]
  - Psychotic disorder [None]
  - Moaning [None]
  - Muscle twitching [None]
  - Anxiety [None]
  - Head banging [None]
  - Confusional state [None]
  - Sudden onset of sleep [None]
